FAERS Safety Report 7329058-7 (Version None)
Quarter: 2011Q1

REPORT INFORMATION
  Report Type: 
  Country: None (occurrence: None)
  Receive Date: 20110225
  Receipt Date: 20110225
  Transmission Date: 20110831
  Serious: No
  Sender: FDA-Public Use
  Company Number: None

PATIENT
  Sex: Male
  Weight: 102.0593 kg

DRUGS (2)
  1. LEVAQUIN [Suspect]
     Indication: CHRONIC SINUSITIS
     Dosage: 1 TABLET 3 TIMES A DAY
     Dates: start: 19980115, end: 20000215
  2. LEFLOXIN [Concomitant]

REACTIONS (1)
  - ROTATOR CUFF SYNDROME [None]
